FAERS Safety Report 23579934 (Version 1)
Quarter: 2024Q1

REPORT INFORMATION
  Report Type: Spontaneous
  Country: US (occurrence: None)
  Receive Date: 20240228
  Receipt Date: 20240228
  Transmission Date: 20240410
  Serious: Yes (Other)
  Sender: FDA-Public Use
  Company Number: None

PATIENT
  Age: 67 Year
  Sex: Female
  Weight: 54 kg

DRUGS (23)
  1. PAXLOVID [Suspect]
     Active Substance: NIRMATRELVIR\RITONAVIR
     Indication: COVID-19
     Dosage: TWICE A DAY ORAL
     Route: 048
     Dates: start: 20240120, end: 20240126
  2. BUSPIRONE [Concomitant]
     Active Substance: BUSPIRONE HYDROCHLORIDE
  3. ESCITALOPRAM [Concomitant]
     Active Substance: ESCITALOPRAM OXALATE
  4. LEVOTHYROXINE [Concomitant]
     Active Substance: LEVOTHYROXINE\LEVOTHYROXINE SODIUM
  5. CRESTOR [Concomitant]
     Active Substance: ROSUVASTATIN CALCIUM
  6. CRESTOR [Concomitant]
     Active Substance: ROSUVASTATIN CALCIUM
  7. OMEPRAZOLE [Concomitant]
     Active Substance: OMEPRAZOLE
  8. FLUTICASONE [Concomitant]
     Active Substance: FLUTICASONE
  9. AZELASTINE [Concomitant]
     Active Substance: AZELASTINE\AZELASTINE HYDROCHLORIDE
  10. dicyclomine [Concomitant]
  11. RIZATRIPTAN [Concomitant]
     Active Substance: RIZATRIPTAN
  12. SUMATRIPTAN [Concomitant]
     Active Substance: SUMATRIPTAN
  13. EMGALITY [Concomitant]
     Active Substance: GALCANEZUMAB-GNLM
  14. REPATHA [Concomitant]
     Active Substance: EVOLOCUMAB
  15. NURTEC ODT [Concomitant]
     Active Substance: RIMEGEPANT SULFATE
  16. KETAMINE [Concomitant]
     Active Substance: KETAMINE
  17. LEVOMEFOLIC ACID [Concomitant]
     Active Substance: LEVOMEFOLIC ACID
  18. Icosapent Ethyl fish oil [Concomitant]
  19. MAGNESIUM GLYCINATE [Concomitant]
     Active Substance: MAGNESIUM GLYCINATE
  20. COENZYME Q10 [Concomitant]
     Active Substance: DIETARY SUPPLEMENT\UBIDECARENONE
  21. PROBIOTICS NOS [Concomitant]
     Active Substance: PROBIOTICS NOS
  22. VITAMIN D3 [Concomitant]
     Active Substance: CHOLECALCIFEROL
  23. PEPPERMINT OIL [Concomitant]
     Active Substance: PEPPERMINT OIL

REACTIONS (15)
  - Hypomania [None]
  - Pressure of speech [None]
  - Logorrhoea [None]
  - Irritability [None]
  - Agitation [None]
  - Inappropriate affect [None]
  - Insomnia [None]
  - Hallucination, visual [None]
  - Dizziness [None]
  - Tinnitus [None]
  - Migraine [None]
  - Abnormal dreams [None]
  - Tunnel vision [None]
  - Feeling of despair [None]
  - Depression [None]

NARRATIVE: CASE EVENT DATE: 20240126
